FAERS Safety Report 22062943 (Version 1)
Quarter: 2023Q1

REPORT INFORMATION
  Report Type: Spontaneous
  Country: US (occurrence: US)
  Receive Date: 20230306
  Receipt Date: 20230306
  Transmission Date: 20230417
  Serious: No
  Sender: FDA-Public Use
  Company Number: US-SA-SAC20230301000470

PATIENT
  Age: 1 Year
  Sex: Female
  Weight: 10.4 kg

DRUGS (1)
  1. DUPIXENT [Suspect]
     Active Substance: DUPILUMAB
     Indication: Dermatitis atopic
     Dosage: 200 MG, Q4W
     Route: 058
     Dates: start: 202212

REACTIONS (3)
  - Molluscum contagiosum [Not Recovered/Not Resolved]
  - Skin swelling [Not Recovered/Not Resolved]
  - Product administered to patient of inappropriate age [Unknown]
